FAERS Safety Report 6232981-8 (Version None)
Quarter: 2009Q2

REPORT INFORMATION
  Report Type: 
  Country: None (occurrence: None)
  Receive Date: 20090615
  Receipt Date: 20090615
  Transmission Date: 20091009
  Serious: No
  Sender: FDA-Public Use
  Company Number: None

PATIENT
  Sex: Male
  Weight: 26.7622 kg

DRUGS (3)
  1. GUANFACINE HYDROCHLORIDE [Suspect]
     Indication: TIC
     Dosage: 1 MG 1/2 TAB BY MOUTH
     Route: 048
     Dates: start: 20090401, end: 20090527
  2. TRILEPTAL [Concomitant]
  3. RISPERDAL [Concomitant]

REACTIONS (3)
  - GENERALISED ERYTHEMA [None]
  - RASH [None]
  - SKIN NODULE [None]
